FAERS Safety Report 6105520-X (Version None)
Quarter: 2009Q1

REPORT INFORMATION
  Report Type: 
  Country: None (occurrence: None)
  Receive Date: 20090306
  Receipt Date: 20090224
  Transmission Date: 20090719
  Serious: Yes (Other)
  Sender: FDA-Public Use
  Company Number: B0537002A

PATIENT
  Age: 11 Year
  Sex: Female
  Weight: 32 kg

DRUGS (3)
  1. LAMICTAL [Suspect]
     Indication: EPILEPSY
     Dosage: 5MG PER DAY
     Route: 048
     Dates: start: 20080731, end: 20080812
  2. VALPROATE SODIUM + VALPROIC ACID [Suspect]
     Indication: EPILEPSY
     Dosage: 900MG PER DAY
     Route: 048
     Dates: start: 20080101, end: 20080812
  3. KEPPRA [Concomitant]
     Indication: EPILEPSY
     Dosage: 1750MG PER DAY
     Route: 048

REACTIONS (5)
  - ASPARTATE AMINOTRANSFERASE INCREASED [None]
  - BLOOD FIBRINOGEN DECREASED [None]
  - COAGULATION FACTOR DECREASED [None]
  - DISSEMINATED INTRAVASCULAR COAGULATION [None]
  - PROTHROMBIN LEVEL DECREASED [None]
